FAERS Safety Report 9861937 (Version 2)
Quarter: 2014Q1

REPORT INFORMATION
  Report Type: Spontaneous
  Country: US (occurrence: US)
  Receive Date: 20140203
  Receipt Date: 20140305
  Transmission Date: 20141002
  Serious: Yes (Other)
  Sender: FDA-Public Use
  Company Number: US-SA-2014SA012647

PATIENT
  Age: 71 Year
  Sex: Female
  Weight: 81.64 kg

DRUGS (13)
  1. LANTUS SOLOSTAR [Suspect]
     Indication: TYPE 2 DIABETES MELLITUS
     Dosage: 50 UNITS AM/PM DOSE:80 UNIT(S)
     Route: 065
     Dates: start: 20131202, end: 20131220
  2. LANTUS SOLOSTAR [Suspect]
     Indication: TYPE 2 DIABETES MELLITUS
     Dosage: 50 UNITS AM/PM
     Route: 065
  3. LEVEMIR [Suspect]
     Route: 065
  4. LEVEMIR [Suspect]
     Route: 065
  5. SOLOSTAR [Concomitant]
     Indication: TYPE 2 DIABETES MELLITUS
     Dates: end: 20131220
  6. SOLOSTAR [Concomitant]
     Indication: TYPE 2 DIABETES MELLITUS
  7. METFORMIN [Concomitant]
     Indication: DIABETES MELLITUS
     Route: 065
  8. ISORBIDE [Concomitant]
     Indication: CARDIAC DISORDER
     Route: 065
  9. FUROSEMIDE [Concomitant]
     Indication: CARDIAC DISORDER
     Route: 065
  10. CLOPIDOGREL [Concomitant]
     Indication: CARDIAC DISORDER
     Route: 065
     Dates: start: 201309
  11. SIMVASTATIN [Concomitant]
     Indication: CARDIAC DISORDER
     Route: 065
  12. SIMVASTATIN [Concomitant]
     Indication: BLOOD CHOLESTEROL
     Route: 065
  13. LOSARTAN [Concomitant]
     Dosage: DOSE:50/12MG
     Route: 065

REACTIONS (5)
  - Stent placement [Unknown]
  - Dyspnoea [Unknown]
  - Visual acuity reduced [Recovered/Resolved]
  - Vision blurred [Recovered/Resolved]
  - Rash [Recovered/Resolved]
